FAERS Safety Report 7630274-5 (Version None)
Quarter: 2011Q3

REPORT INFORMATION
  Report Type: 
  Country: None (occurrence: None)
  Receive Date: 20110722
  Receipt Date: 20110713
  Transmission Date: 20111222
  Serious: Yes (Hospitalization)
  Sender: FDA-Public Use
  Company Number: PHHY2011GB62500

PATIENT
  Age: 77 Year
  Sex: Male

DRUGS (12)
  1. LISINOPRIL [Suspect]
     Indication: HYPERTENSION
     Dosage: UNK UKN, UNK
     Route: 048
     Dates: start: 20090415
  2. METOPROLOL TARTRATE [Suspect]
     Indication: HYPERTENSION
     Dosage: UNK UKN, UNK
     Route: 065
  3. ASPIRIN [Concomitant]
     Dosage: UNK UKN, UNK
  4. DESONIDE [Concomitant]
     Dosage: UNK UKN, UNK
  5. OMEPRAZOLE [Concomitant]
     Dosage: UNK UKN, UNK
  6. ROSUVASTATIN CALCIUM [Suspect]
     Indication: CORONARY ARTERY DISEASE
     Dosage: UNK UKN, UNK
     Route: 048
     Dates: start: 20090420
  7. KETOCONAZOLE [Concomitant]
     Dosage: UNK UKN, UNK
  8. AMLODIPINE [Concomitant]
     Dosage: UNK UKN, UNK
     Dates: start: 20090320
  9. CLOPIDOGREL [Concomitant]
     Dosage: UNK UKN, UNK
  10. DEXTROSE [Concomitant]
     Dosage: UNK UKN, UNK
  11. NITROGLYCERIN [Concomitant]
     Dosage: UNK UKN, UNK
  12. ISOSORBIDE DINITRATE [Suspect]
     Indication: HYPERTENSION
     Dosage: UNK UKN, UNK
     Route: 065

REACTIONS (1)
  - SYNCOPE [None]
